FAERS Safety Report 13470579 (Version 1)
Quarter: 2017Q2

REPORT INFORMATION
  Report Type: Spontaneous
  Country: US (occurrence: US)
  Receive Date: 20170424
  Receipt Date: 20170424
  Transmission Date: 20170830
  Serious: No
  Sender: FDA-Public Use
  Company Number: US-ASTRAZENECA-2013BM01849

PATIENT
  Sex: Female

DRUGS (1)
  1. BYDUREON [Suspect]
     Active Substance: EXENATIDE
     Indication: TYPE 2 DIABETES MELLITUS
     Route: 058

REACTIONS (5)
  - Injection site mass [Unknown]
  - Product quality issue [Unknown]
  - Injection site extravasation [Unknown]
  - Drug dose omission [Unknown]
  - Underdose [Unknown]

NARRATIVE: CASE EVENT DATE: 20130122
